FAERS Safety Report 12631712 (Version 2)
Quarter: 2016Q3

REPORT INFORMATION
  Report Type: Spontaneous
  Country: US (occurrence: US)
  Receive Date: 20160808
  Receipt Date: 20160808
  Transmission Date: 20161109
  Serious: No
  Sender: FDA-Public Use
  Company Number: US-BEH-2016060770

PATIENT
  Sex: Female
  Weight: 54 kg

DRUGS (20)
  1. RITUXAN [Concomitant]
     Active Substance: RITUXIMAB
  2. LOVENOX [Concomitant]
     Active Substance: ENOXAPARIN SODIUM
  3. EPIPEN [Concomitant]
     Active Substance: EPINEPHRINE
  4. HIZENTRA [Suspect]
     Active Substance: HUMAN IMMUNOGLOBULIN G
     Indication: IMMUNODEFICIENCY COMMON VARIABLE
     Route: 058
  5. CITRUCEL [Concomitant]
     Active Substance: METHYLCELLULOSE (4000 MPA.S)
  6. SUCRALFATE. [Concomitant]
     Active Substance: SUCRALFATE
  7. FLUTICASONE PROPIONATE. [Concomitant]
     Active Substance: FLUTICASONE PROPIONATE
  8. LEVOTHYROXINE. [Concomitant]
     Active Substance: LEVOTHYROXINE
  9. ALLOPURINOL. [Concomitant]
     Active Substance: ALLOPURINOL
  10. VENLAFAXINE [Concomitant]
     Active Substance: VENLAFAXINE HYDROCHLORIDE
  11. ALAWAY [Concomitant]
     Active Substance: KETOTIFEN FUMARATE
  12. PHENERGAN [Concomitant]
     Active Substance: PROMETHAZINE HYDROCHLORIDE
  13. ACETAMINOPHEN. [Concomitant]
     Active Substance: ACETAMINOPHEN
  14. DIPHENHYDRAMINE. [Concomitant]
     Active Substance: DIPHENHYDRAMINE
  15. VITAMIN D2 [Concomitant]
     Active Substance: ERGOCALCIFEROL
  16. LIDOCAINE. [Concomitant]
     Active Substance: LIDOCAINE
  17. VITAMIN B12 [Concomitant]
     Active Substance: CYANOCOBALAMIN
  18. POTASSIUM CHLORIDE. [Concomitant]
     Active Substance: POTASSIUM CHLORIDE
  19. RANITIDINE. [Concomitant]
     Active Substance: RANITIDINE
  20. CELEBREX [Concomitant]
     Active Substance: CELECOXIB

REACTIONS (1)
  - Sinusitis [Unknown]
